FAERS Safety Report 20661124 (Version 4)
Quarter: 2023Q1

REPORT INFORMATION
  Report Type: Spontaneous
  Country: AR (occurrence: AR)
  Receive Date: 20220331
  Receipt Date: 20230228
  Transmission Date: 20230417
  Serious: Yes (Hospitalization, Other)
  Sender: FDA-Public Use
  Company Number: AR-PFIZER INC-202200455743

PATIENT
  Age: 69 Year
  Sex: Female

DRUGS (3)
  1. ENBREL [Suspect]
     Active Substance: ETANERCEPT
     Indication: Rheumatoid arthritis
     Dosage: 50 MG (1 DOSE EVERY 10 DAYS)
     Route: 065
     Dates: start: 20090202
  2. ENBREL [Suspect]
     Active Substance: ETANERCEPT
     Dosage: 50 MILLIGRAM, BIWEEKLY
     Route: 065
  3. ENBREL [Suspect]
     Active Substance: ETANERCEPT
     Dosage: 50 MILLIGRAM(1 DOSE EVERY 15 DAYS)
     Route: 065

REACTIONS (11)
  - COVID-19 [Not Recovered/Not Resolved]
  - Blindness [Not Recovered/Not Resolved]
  - Language disorder [Not Recovered/Not Resolved]
  - Prosthesis implantation [Not Recovered/Not Resolved]
  - Amnesia [Not Recovered/Not Resolved]
  - Inappropriate schedule of product administration [Unknown]
  - Intentional product misuse [Unknown]
  - Inadequate aseptic technique in use of product [Unknown]
  - Expired product administered [Not Recovered/Not Resolved]
  - Grip strength decreased [Not Recovered/Not Resolved]
  - Off label use [Unknown]

NARRATIVE: CASE EVENT DATE: 20090202
